FAERS Safety Report 4773549-X (Version None)
Quarter: 2005Q3

REPORT INFORMATION
  Report Type: 
  Country: None (occurrence: None)
  Receive Date: 20050920
  Receipt Date: 20041213
  Transmission Date: 20060218
  Serious: No
  Sender: FDA-Public Use
  Company Number: US-BRISTOL-MYERS SQUIBB COMPANY-12794814

PATIENT
  Age: 81 Year
  Sex: Male
  Weight: 67 kg

DRUGS (6)
  1. BUSPAR [Suspect]
     Indication: ANXIETY DISORDER
     Route: 048
     Dates: start: 20020101
  2. PROSCAR [Concomitant]
  3. HYTRIN [Concomitant]
  4. REMERON [Concomitant]
  5. PREVACID [Concomitant]
  6. FOSAMAX [Concomitant]

REACTIONS (1)
  - HEADACHE [None]
